FAERS Safety Report 18385650 (Version 1)
Quarter: 2020Q4

REPORT INFORMATION
  Report Type: Other
  Country: FR (occurrence: FR)
  Receive Date: 20201015
  Receipt Date: 20201015
  Transmission Date: 20210114
  Serious: Yes (Hospitalization)
  Sender: FDA-Public Use
  Company Number: FR-ROCHE-2677280

PATIENT
  Age: 65 Year
  Sex: Male
  Weight: 67 kg

DRUGS (12)
  1. NUTRYELT [Concomitant]
     Active Substance: IRON\MINERALS\POTASSIUM IOD\SODIUM FLUORIDE\SODIUM MOLYBDATE\SODIUM SELENITE\ZINC
     Dates: start: 20200122
  2. ERYTHROPOIETIN [Concomitant]
     Active Substance: ERYTHROPOIETIN
     Dates: start: 20200108
  3. ATEZOLIZUMAB. [Suspect]
     Active Substance: ATEZOLIZUMAB
     Indication: TRANSITIONAL CELL CARCINOMA
  4. DUROGESIC [Concomitant]
     Active Substance: FENTANYL
     Dates: start: 202001
  5. ZOMETA [Concomitant]
     Active Substance: ZOLEDRONIC ACID
     Dates: start: 20200220, end: 20200220
  6. ATEZOLIZUMAB. [Suspect]
     Active Substance: ATEZOLIZUMAB
     Indication: NON-SMALL CELL LUNG CANCER
     Dosage: DOSE OF LAST ATEZOLIZUMAB ADMINISTERED PRIOR TO AE/SAE 1200 MG ON 20/FEB/2020
     Route: 041
     Dates: start: 20200130
  7. BACTRIM [Concomitant]
     Active Substance: SULFAMETHOXAZOLE\TRIMETHOPRIM
     Indication: ANTIFUNGAL PROPHYLAXIS
     Dates: start: 20200302
  8. OXYNORM [Concomitant]
     Active Substance: OXYCODONE HYDROCHLORIDE
     Dates: start: 202001
  9. DOLIPRANE [Concomitant]
     Active Substance: ACETAMINOPHEN
  10. ALPRAZOLAM. [Concomitant]
     Active Substance: ALPRAZOLAM
  11. INSTANYL [Concomitant]
     Active Substance: FENTANYL
     Dates: start: 202001
  12. PHOCYTAN [Concomitant]
     Active Substance: .ALPHA.-GLUCOSE-1-PHOSPHATE
     Indication: HYPOPHOSPHATAEMIA
     Dates: start: 20200122

REACTIONS (2)
  - Tumour hyperprogression [Not Recovered/Not Resolved]
  - Hypophosphataemia [Not Recovered/Not Resolved]

NARRATIVE: CASE EVENT DATE: 20200217
